FAERS Safety Report 11944984 (Version 1)
Quarter: 2016Q1

REPORT INFORMATION
  Report Type: Report from Study
  Country: MX (occurrence: MX)
  Receive Date: 20160125
  Receipt Date: 20160125
  Transmission Date: 20160526
  Serious: Yes (Other)
  Sender: FDA-Public Use
  Company Number: PHHY2016MX008096

PATIENT
  Age: 56 Year
  Sex: Female

DRUGS (1)
  1. ACLASTA [Suspect]
     Active Substance: ZOLEDRONIC ACID
     Indication: BONE LOSS
     Dosage: 5 MG, Q12MO
     Route: 065
     Dates: start: 20160111

REACTIONS (11)
  - Iridocyclitis [Not Recovered/Not Resolved]
  - Lacrimation increased [Recovering/Resolving]
  - Eye pain [Not Recovered/Not Resolved]
  - Facial pain [Recovering/Resolving]
  - Toothache [Recovering/Resolving]
  - Ocular hyperaemia [Recovering/Resolving]
  - Vision blurred [Not Recovered/Not Resolved]
  - Eye irritation [Unknown]
  - Headache [Recovering/Resolving]
  - Mydriasis [Unknown]
  - Oral pain [Recovering/Resolving]

NARRATIVE: CASE EVENT DATE: 20160114
